FAERS Safety Report 18564883 (Version 1)
Quarter: 2020Q4

REPORT INFORMATION
  Report Type: Spontaneous
  Country: CN (occurrence: CN)
  Receive Date: 20201201
  Receipt Date: 20201201
  Transmission Date: 20210114
  Serious: Yes (Other)
  Sender: FDA-Public Use
  Company Number: CN-PFIZER INC-2020471877

PATIENT
  Age: 76 Year
  Sex: Female
  Weight: 40 kg

DRUGS (3)
  1. METHYLPREDNISOLONE SODIUM SUCCINATE. [Suspect]
     Active Substance: METHYLPREDNISOLONE SODIUM SUCCINATE
     Indication: BRONCHITIS
     Dosage: 40 MG, 1X/DAY
     Route: 041
     Dates: start: 20201117, end: 20201121
  2. SODIUM CHLORIDE. [Concomitant]
     Active Substance: SODIUM CHLORIDE
     Indication: VEHICLE SOLUTION USE
     Dosage: 100 MG, 1X/DAY
     Route: 041
     Dates: start: 20201117, end: 20201121
  3. SAI BO LI [Concomitant]
     Indication: PROPHYLAXIS
     Dosage: 2500 IU, 1X/DAY
     Route: 058
     Dates: start: 20201115, end: 20201127

REACTIONS (1)
  - Platelet count increased [Unknown]

NARRATIVE: CASE EVENT DATE: 20201120
